FAERS Safety Report 4394125-7 (Version None)
Quarter: 2004Q3

REPORT INFORMATION
  Report Type: 
  Country: None (occurrence: None)
  Receive Date: 20040712
  Receipt Date: 20040615
  Transmission Date: 20050211
  Serious: Yes (Death)
  Sender: FDA-Public Use
  Company Number: PHBS2004JP08009

PATIENT
  Age: 91 Year
  Sex: Male
  Weight: 53 kg

DRUGS (6)
  1. LAMISIL [Suspect]
     Indication: NAIL TINEA
     Dosage: UNK, UNK
     Route: 048
     Dates: start: 20040210, end: 20040512
  2. SIGMART [Concomitant]
     Indication: ANGINA PECTORIS
     Dosage: 15 MG/D
     Route: 048
     Dates: end: 20040618
  3. TRASACOR [Concomitant]
     Indication: ANGINA PECTORIS
     Dosage: 60 MG/D
     Route: 048
     Dates: end: 20040618
  4. HARNAL [Concomitant]
     Indication: BENIGN PROSTATIC HYPERPLASIA
     Dosage: 0.2 MG/D
     Route: 048
     Dates: end: 20040618
  5. PLETAL [Concomitant]
     Indication: ANGINA PECTORIS
     Dosage: 200 MG/D
     Route: 048
     Dates: end: 20040618
  6. FRANDOL [Concomitant]
     Indication: ANGINA PECTORIS
     Dosage: 1 DF, QD
     Route: 061
     Dates: end: 20040618

REACTIONS (2)
  - DEATH [None]
  - ECZEMA [None]
